FAERS Safety Report 6962922-7 (Version None)
Quarter: 2010Q3

REPORT INFORMATION
  Report Type: 
  Country: None (occurrence: None)
  Receive Date: 20100823
  Receipt Date: 20100610
  Transmission Date: 20110219
  Serious: No
  Sender: FDA-Public Use
  Company Number: 013711

PATIENT
  Sex: Male
  Weight: 104.5 kg

DRUGS (7)
  1. CIMZIA [Suspect]
     Indication: CROHN'S DISEASE
     Dosage: (400 MG 1X/MONTH SUBCUTANEOUS), (200 MG 1X/2 WEEKS SUBCUTANEOUS)
     Route: 058
     Dates: start: 20100226, end: 20100522
  2. CIMZIA [Suspect]
     Indication: CROHN'S DISEASE
     Dosage: (400 MG 1X/MONTH SUBCUTANEOUS), (200 MG 1X/2 WEEKS SUBCUTANEOUS)
     Route: 058
     Dates: start: 20100522
  3. METHOTREXATE [Concomitant]
  4. PREDNISONE [Concomitant]
  5. PREVACID [Concomitant]
  6. DOXAZOSIN MESYLATE [Concomitant]
  7. VITAMIN B-12 [Concomitant]

REACTIONS (1)
  - FURUNCLE [None]
